FAERS Safety Report 6329769-6 (Version None)
Quarter: 2009Q3

REPORT INFORMATION
  Report Type: 
  Country: None (occurrence: None)
  Receive Date: 20090826
  Receipt Date: 20090817
  Transmission Date: 20100115
  Serious: Yes (Hospitalization)
  Sender: FDA-Public Use
  Company Number: PHHY2009DE35481

PATIENT
  Age: 84 Year
  Sex: Male

DRUGS (4)
  1. EXELON [Suspect]
     Dosage: 6 MG DAILY
     Route: 048
     Dates: start: 20060101, end: 20090620
  2. EXELON [Suspect]
     Dosage: 9.5 MG/DAY
     Route: 062
     Dates: start: 20090620
  3. ANTIANDROGENS [Concomitant]
  4. ASPIRIN [Concomitant]

REACTIONS (4)
  - APPLICATION SITE ERYTHEMA [None]
  - BLADDER CATHETERISATION [None]
  - DIZZINESS [None]
  - HYPOAESTHESIA [None]
